FAERS Safety Report 15593575 (Version 5)
Quarter: 2019Q1

REPORT INFORMATION
  Report Type: Report from Study
  Country: US (occurrence: US)
  Receive Date: 20181107
  Receipt Date: 20190212
  Transmission Date: 20190417
  Serious: Yes (Hospitalization)
  Sender: FDA-Public Use
  Company Number: US-ACTELION-A-NJ2018-181378

PATIENT
  Age: 8 Month
  Sex: Female
  Weight: 11.79 kg

DRUGS (3)
  1. TADALAFIL. [Concomitant]
     Active Substance: TADALAFIL
     Dosage: 7 MG, QAM
     Route: 048
     Dates: start: 20181017
  2. SODIUM CHLORIDE. [Concomitant]
     Active Substance: SODIUM CHLORIDE
  3. TRACLEER [Suspect]
     Active Substance: BOSENTAN
     Indication: PULMONARY ARTERIAL HYPERTENSION
     Dosage: 8 MG, BID
     Route: 048
     Dates: start: 20181219

REACTIONS (4)
  - Unevaluable event [Unknown]
  - Hospitalisation [Unknown]
  - Dyspnoea [Unknown]
  - Blood electrolytes abnormal [Unknown]
